FAERS Safety Report 23060755 (Version 1)
Quarter: 2023Q4

REPORT INFORMATION
  Report Type: Spontaneous
  Country: LK (occurrence: LK)
  Receive Date: 20231012
  Receipt Date: 20231012
  Transmission Date: 20240110
  Serious: Yes (Other)
  Sender: FDA-Public Use
  Company Number: LK-ANIPHARMA-2023-LK-000004

PATIENT
  Age: 72 Year
  Sex: Male

DRUGS (1)
  1. BACLOFEN [Suspect]
     Active Substance: BACLOFEN
     Indication: Pelvic pain
     Dosage: 10 MG TWICE

REACTIONS (1)
  - Myoclonus [Unknown]
